FAERS Safety Report 8916005 (Version 2)
Quarter: 2012Q4

REPORT INFORMATION
  Report Type: 
  Country: CO (occurrence: CO)
  Receive Date: 20121119
  Receipt Date: 20121217
  Transmission Date: 20130627
  Serious: Yes (Other)
  Sender: FDA-Public Use
  Company Number: CO-COVIDIEN/TYCO HEALTHCARE/MALLINCKRODT-T201203953

PATIENT
  Age: 19 Year
  Sex: Female
  Weight: 41 kg

DRUGS (1)
  1. OPTIRAY [Suspect]
     Indication: COMPUTERISED TOMOGRAM
     Dosage: 75 mg/ml
     Route: 042

REACTIONS (2)
  - Anaphylactic shock [Unknown]
  - Dysphonia [Unknown]
